FAERS Safety Report 9608702 (Version 1)
Quarter: 2013Q4

REPORT INFORMATION
  Report Type: Spontaneous
  Country: US (occurrence: US)
  Receive Date: 20131009
  Receipt Date: 20131009
  Transmission Date: 20140711
  Serious: Yes (Hospitalization)
  Sender: FDA-Public Use
  Company Number: US-ASTRAZENECA-2013SE73315

PATIENT
  Age: 81 Year
  Sex: Female
  Weight: 52.2 kg

DRUGS (3)
  1. BUDESONIDE [Suspect]
     Dosage: BID
     Route: 055
  2. SYMBICORT [Suspect]
     Indication: DYSPNOEA
     Dosage: 80/4.5 MCG 2 PUFFS DAILY
     Route: 055
     Dates: start: 201307
  3. PROFORMIST NEBULIZER [Concomitant]
     Dosage: BID
     Route: 050

REACTIONS (5)
  - Dyspnoea [Recovered/Resolved]
  - Body height decreased [Unknown]
  - Dry throat [Not Recovered/Not Resolved]
  - Dysphonia [Not Recovered/Not Resolved]
  - Off label use [Not Recovered/Not Resolved]
